FAERS Safety Report 12607848 (Version 1)
Quarter: 2016Q3

REPORT INFORMATION
  Report Type: Spontaneous
  Country: US (occurrence: US)
  Receive Date: 20160729
  Receipt Date: 20160729
  Transmission Date: 20161109
  Serious: No
  Sender: FDA-Public Use
  Company Number: US-009507513-1607USA004915

PATIENT
  Age: 26 Year
  Sex: Female

DRUGS (1)
  1. IMPLANON [Suspect]
     Active Substance: ETONOGESTREL
     Dosage: 1 STICK EVERY 3 YEARS
     Dates: start: 201208, end: 201508

REACTIONS (7)
  - Amenorrhoea [Unknown]
  - Weight decreased [Unknown]
  - Emotional disorder [Unknown]
  - Uterine spasm [Unknown]
  - Weight increased [Unknown]
  - Menstrual disorder [Unknown]
  - Hormone level abnormal [Unknown]

NARRATIVE: CASE EVENT DATE: 2015
